FAERS Safety Report 23962136 (Version 9)
Quarter: 2025Q3

REPORT INFORMATION
  Report Type: Report from Study
  Country: MX (occurrence: MX)
  Receive Date: 20240611
  Receipt Date: 20250718
  Transmission Date: 20251021
  Serious: Yes (Hospitalization, Other)
  Sender: NOVARTIS
  Company Number: MX-002147023-NVSC2024MX100584

PATIENT
  Age: 57 Year
  Sex: Female
  Weight: 65 kg

DRUGS (6)
  1. KISQALI [Suspect]
     Active Substance: RIBOCICLIB SUCCINATE
     Indication: Breast cancer
     Dosage: 3 OF 200 MG, QD
     Route: 048
  2. KISQALI [Suspect]
     Active Substance: RIBOCICLIB SUCCINATE
     Dosage: 400 MG (2 X 200 MG), QD (EVERY 24 HOURS)
     Route: 048
     Dates: start: 202305
  3. KISQALI [Suspect]
     Active Substance: RIBOCICLIB SUCCINATE
     Dosage: 400 MG (2 X 200 MG), QD (EVERY 24 HOURS)
     Route: 048
     Dates: start: 202307
  4. KISQALI [Suspect]
     Active Substance: RIBOCICLIB SUCCINATE
     Dosage: 2 DOSAGE FORM, QD
     Route: 048
  5. KISQALI [Suspect]
     Active Substance: RIBOCICLIB SUCCINATE
     Dosage: 2 DOSAGE FORM, (200 MG) QD
     Route: 048
     Dates: start: 20230901, end: 20240830
  6. LETROZOLE [Suspect]
     Active Substance: LETROZOLE
     Indication: Breast cancer
     Dosage: 1 DOSAGE FORM (2.5 MG), QD
     Route: 065
     Dates: start: 20230901

REACTIONS (35)
  - Pneumonia [Recovered/Resolved]
  - Spinal cord injury [Unknown]
  - Neuropathy peripheral [Not Recovered/Not Resolved]
  - Paraesthesia [Not Recovered/Not Resolved]
  - Hypoaesthesia [Recovered/Resolved]
  - Pain in extremity [Not Recovered/Not Resolved]
  - Breast cancer recurrent [Not Recovered/Not Resolved]
  - Metastases to adrenals [Unknown]
  - Metastases to neck [Unknown]
  - Constipation [Unknown]
  - Gastrointestinal disorder [Unknown]
  - Flatulence [Unknown]
  - Discomfort [Unknown]
  - Gait disturbance [Unknown]
  - Arthropathy [Unknown]
  - Asthenia [Unknown]
  - Laboratory test abnormal [Recovered/Resolved]
  - Thyroid cyst [Not Recovered/Not Resolved]
  - Thyroid mass [Not Recovered/Not Resolved]
  - Increased appetite [Unknown]
  - Synovial cyst [Unknown]
  - Nodule [Unknown]
  - Neck pain [Unknown]
  - Headache [Unknown]
  - Spinal disorder [Unknown]
  - Fatigue [Recovered/Resolved]
  - Weight increased [Unknown]
  - Inflammation [Unknown]
  - Weight decreased [Recovered/Resolved]
  - Dehydration [Recovered/Resolved]
  - Dry mouth [Recovered/Resolved]
  - Balance disorder [Recovered/Resolved]
  - Diarrhoea [Recovered/Resolved]
  - Off label use [Unknown]
  - Drug ineffective [Not Recovered/Not Resolved]

NARRATIVE: CASE EVENT DATE: 20230601
